FAERS Safety Report 4327128-9 (Version None)
Quarter: 2004Q1

REPORT INFORMATION
  Report Type: 
  Country: None (occurrence: None)
  Receive Date: 20040330
  Receipt Date: 20040102
  Transmission Date: 20041129
  Serious: Yes (Hospitalization)
  Sender: FDA-Public Use
  Company Number: US-GLAXOSMITHKLINE-A0491575A

PATIENT
  Sex: Male
  Weight: 129.5 kg

DRUGS (11)
  1. AVANDIA [Suspect]
     Indication: DIABETES MELLITUS NON-INSULIN-DEPENDENT
     Dosage: 4MG TWICE PER DAY
     Route: 048
  2. ADALAT [Concomitant]
  3. ZESTRIL [Concomitant]
  4. GLYBURIDE [Concomitant]
  5. NORVASC [Concomitant]
  6. ATENOLOL [Concomitant]
  7. LIPITOR [Concomitant]
     Indication: HYPERLIPIDAEMIA
  8. LABETALOL HCL [Concomitant]
  9. DIOVAN [Concomitant]
  10. LASIX [Concomitant]
  11. K-DUR 10 [Concomitant]

REACTIONS (22)
  - ANAEMIA [None]
  - AORTIC VALVE DISEASE [None]
  - ATELECTASIS [None]
  - CARDIAC FAILURE CONGESTIVE [None]
  - CARDIAC MURMUR [None]
  - CARDIOMEGALY [None]
  - CORONARY ARTERY ATHEROSCLEROSIS [None]
  - DIASTOLIC DYSFUNCTION [None]
  - DYSPNOEA [None]
  - ELECTROCARDIOGRAM ST-T CHANGE [None]
  - FLUID OVERLOAD [None]
  - HAEMORRHAGE [None]
  - HYPERLIPIDAEMIA [None]
  - HYPERTENSION [None]
  - LUNG INFILTRATION [None]
  - MITRAL VALVE INCOMPETENCE [None]
  - OEDEMA PERIPHERAL [None]
  - PHLEBITIS SUPERFICIAL [None]
  - PULMONARY FIBROSIS [None]
  - RALES [None]
  - VENTRICULAR HYPERTROPHY [None]
  - WHEEZING [None]
